FAERS Safety Report 21416582 (Version 1)
Quarter: 2022Q4

REPORT INFORMATION
  Report Type: Spontaneous
  Country: ES (occurrence: ES)
  Receive Date: 20221006
  Receipt Date: 20221006
  Transmission Date: 20230113
  Serious: Yes (Other)
  Sender: FDA-Public Use
  Company Number: None

PATIENT
  Age: 64 Year
  Sex: Female

DRUGS (7)
  1. RAMIPRIL [Suspect]
     Active Substance: RAMIPRIL
     Indication: Essential hypertension
     Dosage: COMP A-DECE, RAMIPRIL (2497A), THERAPY END DATE : NASK
     Dates: start: 20220504
  2. VERISCAL D FLAS [Concomitant]
     Indication: Osteoporosis
     Dosage: 1.0 COMP D-CE, VERISCAL D FLAS 1500 MG/ 400 IU ORODISPERSABLE TABLETS, 60 TABLETS
     Dates: start: 20110506
  3. GREGAL [Concomitant]
     Indication: Asthma
     Dosage: 18 MICROGRAM DAILY; 18.0 MCG C/24 H, GREGAL 10 MICROGRAMS/DELIVERY DOSE INHALATION POWDER (HARD CAPS
     Dates: start: 20190416
  4. ATROALD [Concomitant]
     Indication: Asthma
     Dosage: 160 MICROGRAM DAILY; 40.0 MCG EVERY 6 HOURS, ATROALDO 20 MICROGRAMS/PULSE, PRESSURE INHALATION SOLUT
     Dates: start: 20190416
  5. IBANDRONIC ACID CINFA [Concomitant]
     Indication: Osteoporosis
     Dosage: 150.0 MG EVERY 28 DAYS, IBANDRONIC ACID CINFA 150 MG FILM-COATED TABLETS EFG, 3 TABLETS
     Dates: start: 20170722
  6. RILAST [Concomitant]
     Active Substance: BUDESONIDE\FORMOTEROL
     Indication: Asthma
     Dosage: 4 DOSAGE FORMS DAILY; 2.0 PUFF C/12 H, RILAST TURBUHALER 160 MICROGRAMS/4.5 MICROGRAMS/INHALATION PO
     Dates: start: 20181219
  7. PARACETAMOL CINFA [Concomitant]
     Indication: Epicondylitis
     Dosage: 1950 MILLIGRAM DAILY; 650.0 MG EVERY 8 HOURS, PARACETAMOL CINFA 650 MG TABLETS EFG 40 TABLETS
     Dates: start: 20171221

REACTIONS (1)
  - Pertussis [Recovered/Resolved]

NARRATIVE: CASE EVENT DATE: 20220606
